FAERS Safety Report 8267923-7 (Version None)
Quarter: 2012Q2

REPORT INFORMATION
  Report Type: 
  Country: None (occurrence: None)
  Receive Date: 20120404
  Receipt Date: 20120329
  Transmission Date: 20120825
  Serious: Yes (Death)
  Sender: FDA-Public Use
  Company Number: 2012049860

PATIENT
  Age: 65 Year
  Sex: Male

DRUGS (6)
  1. FRAGMIN [Suspect]
     Dosage: 12500 IU
  2. DILANTIN [Concomitant]
  3. HYDROMORPH CONTIN (HYDROMORPHONE HYDROCHLORIDE) [Concomitant]
  4. DEXAMETHASONE [Concomitant]
  5. DILAUDID [Concomitant]
  6. OMEPRAZOLE [Concomitant]

REACTIONS (2)
  - ORGAN FAILURE [None]
  - SYRINGE ISSUE [None]
